FAERS Safety Report 10388861 (Version 1)
Quarter: 2014Q1

REPORT INFORMATION
  Report Type: Spontaneous
  Country: US (occurrence: None)
  Receive Date: 20140306
  Receipt Date: 20140306
  Transmission Date: 20141002
  Serious: Yes (Hospitalization)
  Sender: FDA-Public Use
  Company Number: 163-21880-13101851

PATIENT
  Age: 79 Year
  Sex: Female
  Weight: 56.5 kg

DRUGS (13)
  1. REVLIMID (LENALIDOMIDE) (25 MILLIGRAM, CAPSULES) [Suspect]
     Indication: PLASMA CELL MYELOMA
     Dosage: 25 MG, 21 IN 21 D, PO
     Route: 048
     Dates: start: 201306, end: 20131007
  2. DEXAMETHASONE [Concomitant]
  3. VITAMIN D3 (COLECALCIFEROL) [Concomitant]
  4. ROBAXIN (METHOCARBAMOL) [Concomitant]
  5. FLONASE (FLUTICASONE PROPIONATE) [Concomitant]
  6. LORAZEPAM [Concomitant]
  7. ATENOLOL [Concomitant]
  8. FISH OIL [Concomitant]
  9. POTASSIUM [Concomitant]
  10. MULTIVITAMINS [Concomitant]
  11. ASPIRIN (ACETYLSALICYLIC ACID) [Concomitant]
  12. OMEPRAZOLE [Concomitant]
  13. FELODIPINE [Concomitant]

REACTIONS (3)
  - Dyspnoea [None]
  - Fatigue [None]
  - Diarrhoea [None]
